FAERS Safety Report 26201496 (Version 1)
Quarter: 2025Q4

REPORT INFORMATION
  Report Type: Spontaneous
  Country: JP (occurrence: JP)
  Receive Date: 20251226
  Receipt Date: 20251226
  Transmission Date: 20260118
  Serious: Yes (Life-Threatening, Hospitalization, Other)
  Sender: MICRO LABS LIMITED
  Company Number: JP-MICRO LABS LIMITED-ML2025-06764

PATIENT
  Age: 46 Year
  Sex: Male
  Weight: 90.2 kg

DRUGS (1)
  1. CAFFEINE CITRATE [Suspect]
     Active Substance: CAFFEINE CITRATE
     Indication: Product used for unknown indication
     Dosage: 10 G OF CAFFEINE

REACTIONS (9)
  - Toxicity to various agents [Unknown]
  - Diabetic ketoacidosis [Recovered/Resolved]
  - Gastrointestinal injury [Recovered/Resolved]
  - Suicide attempt [Unknown]
  - Ventricular arrhythmia [Recovered/Resolved]
  - Metabolic acidosis [Recovered/Resolved]
  - Loss of consciousness [Recovered/Resolved]
  - Hyperglycaemia [Recovered/Resolved]
  - Intentional overdose [Unknown]
